FAERS Safety Report 17544660 (Version 1)
Quarter: 2020Q1

REPORT INFORMATION
  Report Type: Spontaneous
  Country: US (occurrence: US)
  Receive Date: 20200316
  Receipt Date: 20200316
  Transmission Date: 20200409
  Serious: No
  Sender: FDA-Public Use
  Company Number: US-PFIZER INC-2020111149

PATIENT
  Sex: Female

DRUGS (1)
  1. IBRANCE [Suspect]
     Active Substance: PALBOCICLIB
     Indication: BREAST CANCER FEMALE
     Dosage: 75 MG, DAILY (1 PO FOR 21DAYS)
     Route: 048
     Dates: start: 20170307

REACTIONS (3)
  - Nausea [Unknown]
  - Hot flush [Unknown]
  - Insomnia [Unknown]
